FAERS Safety Report 19083528 (Version 1)
Quarter: 2021Q2

REPORT INFORMATION
  Report Type: Spontaneous
  Country: GB (occurrence: GB)
  Receive Date: 20210401
  Receipt Date: 20210401
  Transmission Date: 20210717
  Serious: Yes (Death, Hospitalization, Other)
  Sender: FDA-Public Use
  Company Number: GB-ACCORD-221096

PATIENT
  Age: 81 Year
  Sex: Female

DRUGS (51)
  1. LETROZOLE. [Suspect]
     Active Substance: LETROZOLE
     Indication: BREAST CANCER METASTATIC
     Dosage: 2.5 MILLIGRAM, QD
     Route: 048
     Dates: start: 20160413, end: 20180704
  2. XGEVA [Suspect]
     Active Substance: DENOSUMAB
     Indication: PRODUCT USED FOR UNKNOWN INDICATION
     Dosage: 120 MILLIGRAM
     Route: 058
     Dates: start: 20180110, end: 20190426
  3. ZOLEDRONIC ACID [Concomitant]
     Active Substance: ZOLEDRONIC ACID
     Dosage: 3.3 MILLIGRAM, QMO
     Route: 042
     Dates: start: 20170209, end: 20170323
  4. ZOPICLONE [Concomitant]
     Active Substance: ZOPICLONE
     Dosage: 3.75 MILLIGRAM, QD
     Route: 048
     Dates: start: 20160217
  5. CODEINE PHOSPHATE/PARACETAMOL [Concomitant]
     Active Substance: ACETAMINOPHEN\CODEINE PHOSPHATE
     Indication: BACK PAIN
     Dosage: 2 TABLET
     Route: 048
     Dates: start: 20160707
  6. METFORMIN [Concomitant]
     Active Substance: METFORMIN HYDROCHLORIDE
     Route: 048
  7. ZOLEDRONIC ACID [Concomitant]
     Active Substance: ZOLEDRONIC ACID
     Dosage: 3.3 MILLIGRAM, QMO
     Route: 042
     Dates: start: 20170628, end: 20171220
  8. LETROZOLE. [Suspect]
     Active Substance: LETROZOLE
     Indication: HER2 POSITIVE BREAST CANCER
  9. GLICLAZIDE [Concomitant]
     Active Substance: GLICLAZIDE
     Dosage: 80 MILLIGRAM, QD
     Route: 048
     Dates: start: 201809, end: 20190424
  10. GLICLAZIDE [Concomitant]
     Active Substance: GLICLAZIDE
     Dosage: 40 MILLIGRAM, QD
     Route: 048
     Dates: start: 20190620, end: 20190705
  11. ZOLEDRONIC ACID [Concomitant]
     Active Substance: ZOLEDRONIC ACID
     Dosage: 3.3 MILLIGRAM, QMO
     Route: 042
     Dates: start: 20190408, end: 20190408
  12. ZOLEDRONIC ACID [Concomitant]
     Active Substance: ZOLEDRONIC ACID
     Indication: PROPHYLAXIS
     Dosage: 3.3 MILLIGRAM, QMO
     Route: 042
     Dates: start: 20160226
  13. DEXAMETHASONE. [Concomitant]
     Active Substance: DEXAMETHASONE
     Dosage: 16 MILLIGRAM, QD
     Route: 048
     Dates: start: 20160225
  14. TRAMADOL. [Concomitant]
     Active Substance: TRAMADOL
     Route: 048
     Dates: start: 20160217
  15. CANDESARTAN. [Concomitant]
     Active Substance: CANDESARTAN
     Route: 048
  16. METOCLOPRAMIDE. [Concomitant]
     Active Substance: METOCLOPRAMIDE
     Route: 048
  17. RIVAROXABAN [Concomitant]
     Active Substance: RIVAROXABAN
  18. ZOLEDRONIC ACID [Concomitant]
     Active Substance: ZOLEDRONIC ACID
     Dosage: 3.3 MILLIGRAM, QMO
     Route: 042
     Dates: start: 20160414, end: 20170112
  19. TAMOXIFEN [Suspect]
     Active Substance: TAMOXIFEN
     Indication: HER2 POSITIVE BREAST CANCER
  20. PERTUZUMAB. [Suspect]
     Active Substance: PERTUZUMAB
     Indication: HER2 POSITIVE BREAST CANCER
     Dosage: 840 MILLIGRAM, Q3WK
     Route: 042
     Dates: start: 20160225, end: 20180704
  21. TAMOXIFEN [Suspect]
     Active Substance: TAMOXIFEN
     Indication: BREAST CANCER METASTATIC
     Dosage: 20 MILLIGRAM, QD
     Route: 048
     Dates: start: 20180704, end: 20180915
  22. TINZAPARIN/TINZAPARIN SODIUM [Concomitant]
     Active Substance: TINZAPARIN SODIUM
  23. BUDESONIDE. [Concomitant]
     Active Substance: BUDESONIDE
     Dosage: 9 MILLIGRAM, QD
     Route: 048
     Dates: start: 20190403, end: 20190523
  24. MACROGOL/MACROGOL STEARATE [Concomitant]
     Active Substance: POLYETHYLENE GLYCOLS
     Dosage: 2 UNK, QD
     Route: 048
  25. PERTUZUMAB. [Suspect]
     Active Substance: PERTUZUMAB
     Indication: BREAST CANCER METASTATIC
     Dosage: 840 MILLIGRAM, Q3WK
     Route: 042
     Dates: start: 20160225, end: 20160225
  26. DOCETAXEL. [Suspect]
     Active Substance: DOCETAXEL
     Indication: BREAST CANCER METASTATIC
     Dosage: 65 MILLIGRAM, Q3WK
     Route: 042
     Dates: start: 20180226, end: 20180226
  27. SODIUM CHLORIDE. [Concomitant]
     Active Substance: SODIUM CHLORIDE
     Dosage: 0.9 PERCENT
     Route: 042
     Dates: start: 20190508, end: 20190510
  28. ATORVASTATIN [Concomitant]
     Active Substance: ATORVASTATIN
     Dosage: 20 MILLIGRAM, QD
     Route: 048
  29. CODEINE [Concomitant]
     Active Substance: CODEINE
  30. POTASSIUM [Concomitant]
     Active Substance: POTASSIUM
     Dosage: UNK
     Route: 042
     Dates: start: 20190611, end: 20190620
  31. SANDO K [Concomitant]
  32. METFORMIN [Concomitant]
     Active Substance: METFORMIN HYDROCHLORIDE
     Dosage: 2000 MILLIGRAM, QD
     Route: 048
  33. TRASTUZUMAB. [Suspect]
     Active Substance: TRASTUZUMAB
     Indication: HER2 POSITIVE BREAST CANCER
     Dosage: 400 MILLIGRAM
     Route: 042
     Dates: start: 20160225, end: 20160617
  34. CHLORHEXIDINE [Concomitant]
     Active Substance: CHLORHEXIDINE
     Indication: PROPHYLAXIS
     Dosage: 4 UNK, QD
     Route: 048
     Dates: start: 20160225
  35. MAGNESIUM GLYCEROPHOSPHATE [Concomitant]
     Active Substance: MAGNESIUM GLYCEROPHOSPHATE
     Indication: HYPOMAGNESAEMIA
     Dosage: UNK
     Route: 048
     Dates: start: 20160526, end: 20160530
  36. SITAGLIPTIN/SITAGLIPTIN PHOSPHATE [Concomitant]
     Active Substance: SITAGLIPTIN PHOSPHATE
     Route: 048
  37. GLICLAZIDE [Concomitant]
     Active Substance: GLICLAZIDE
     Dosage: 80 MILLIGRAM, QD
     Route: 048
     Dates: start: 20190425, end: 201905
  38. CALCICHEW D3 FORTE [Concomitant]
     Active Substance: CALCIUM\CHOLECALCIFEROL
     Dosage: 2 UNK, QD
     Route: 048
     Dates: start: 20160323
  39. LINAGLIPTIN [Concomitant]
     Active Substance: LINAGLIPTIN
     Dosage: 5 MILLIGRAM, QD
     Route: 048
     Dates: start: 201809, end: 201905
  40. LOPERAMIDE [Concomitant]
     Active Substance: LOPERAMIDE
     Dosage: 2 MILLIGRAM
     Route: 048
     Dates: start: 20160225
  41. OCTASA [Concomitant]
     Active Substance: MESALAMINE
     Dosage: 800 MILLIGRAM, QD
     Route: 048
     Dates: start: 20170523
  42. PHOSPHATE SANDOZ [Concomitant]
     Active Substance: SODIUM PHOSPHATE, MONOBASIC, ANHYDROUS
     Dosage: UNK
     Dates: start: 20190611, end: 20190614
  43. TRASTUZUMAB/EMTANSINE [Suspect]
     Active Substance: ADO-TRASTUZUMAB EMTANSINE
     Indication: HER2 POSITIVE BREAST CANCER
  44. MIMPARA [Suspect]
     Active Substance: CINACALCET HYDROCHLORIDE
     Indication: PRODUCT USED FOR UNKNOWN INDICATION
     Dosage: 30 MILLIGRAM, QD
     Route: 048
     Dates: start: 20190413, end: 201907
  45. TRASTUZUMAB/EMTANSINE [Suspect]
     Active Substance: ADO-TRASTUZUMAB EMTANSINE
     Indication: BREAST CANCER METASTATIC
     Dosage: 220 MILLIGRAM, Q3WK
     Route: 042
     Dates: start: 20180928
  46. HUMAN ACTRAPID [Concomitant]
     Active Substance: INSULIN HUMAN
     Dosage: UNK
     Route: 058
     Dates: start: 20190620, end: 20190705
  47. AMLODIPINE [Concomitant]
     Active Substance: AMLODIPINE BESYLATE
     Dosage: 5 MILLIGRAM, QD
     Route: 048
     Dates: start: 20180915, end: 20190529
  48. DOMPERIDONE [Concomitant]
     Active Substance: DOMPERIDONE
     Dosage: 30 MILLIGRAM, QD
     Route: 048
     Dates: start: 20160225
  49. PREDNISOLONE. [Concomitant]
     Active Substance: PREDNISOLONE
     Dosage: 30 MILLIGRAM, QD
     Route: 048
     Dates: start: 20190606, end: 20190618
  50. TRASTUZUMAB. [Suspect]
     Active Substance: TRASTUZUMAB
     Indication: BREAST CANCER METASTATIC
     Dosage: 525 MILLIGRAM, Q3WK
     Route: 042
     Dates: start: 20160225, end: 20160225
  51. TRASTUZUMAB. [Suspect]
     Active Substance: TRASTUZUMAB
     Indication: PRODUCT USED FOR UNKNOWN INDICATION
     Dosage: 350 MILLIGRAM, Q3WK
     Route: 042
     Dates: start: 20160707, end: 20180822

REACTIONS (3)
  - Disease progression [Fatal]
  - Back pain [Not Recovered/Not Resolved]
  - Pulmonary embolism [Recovered/Resolved]

NARRATIVE: CASE EVENT DATE: 20180915
